FAERS Safety Report 6615846 (Version 2)
Quarter: 2013Q2

REPORT INFORMATION
  Report Type: Report from Study
  Country: US (occurrence: US)
  Receive Date: 20080416
  Receipt Date: 20130515
  Transmission Date: 20140414
  Serious: Yes (Hospitalization)
  Sender: FDA-Public Use
  Company Number: US-ASTRAZENECA-2008UW06979

PATIENT
  Age: 24326 Day
  Sex: Male
  Weight: 101 kg

DRUGS (13)
  1. ATACAND HCT [Suspect]
     Indication: HYPERTENSION
     Route: 048
     Dates: start: 20070413
  2. ATACAND HCT [Suspect]
     Indication: HYPERTENSION
     Route: 048
     Dates: start: 20070413
  3. AMARYL [Concomitant]
  4. MULTIVITAMIN [Concomitant]
  5. SELENIUM [Concomitant]
  6. IMDUR [Concomitant]
  7. ASPIRIN [Concomitant]
  8. PROVENTIL [Concomitant]
  9. LASIX [Concomitant]
  10. TOPROL [Concomitant]
     Route: 048
  11. FIBERCON [Concomitant]
  12. PLAVIX [Concomitant]
  13. LANTUS INSULIN [Concomitant]

REACTIONS (2)
  - Pneumonia streptococcal [Not Recovered/Not Resolved]
  - Angina pectoris [Recovered/Resolved]
